FAERS Safety Report 4394371-2 (Version None)
Quarter: 2004Q3

REPORT INFORMATION
  Report Type: 
  Country: None (occurrence: None)
  Receive Date: 20040712
  Receipt Date: 20021001
  Transmission Date: 20050211
  Serious: Yes (Life-Threatening, Other)
  Sender: FDA-Public Use
  Company Number: US-BRISTOL-MYERS SQUIBB COMPANY-12060109

PATIENT
  Age: 50 Year
  Sex: Male
  Weight: 79 kg

DRUGS (9)
  1. ZERIT [Suspect]
     Indication: HIV INFECTION
     Route: 048
     Dates: start: 20010721
  2. SUSTIVA [Suspect]
     Indication: HIV INFECTION
     Route: 048
     Dates: start: 20010427
  3. LAMIVUDINE [Suspect]
     Indication: HIV INFECTION
     Route: 048
     Dates: start: 20010427
  4. PREVACID [Concomitant]
     Indication: GASTROOESOPHAGEAL REFLUX DISEASE
     Route: 048
     Dates: start: 20000615, end: 20010820
  5. BACTRIM [Concomitant]
     Indication: PROPHYLAXIS
     Dosage: DOSE AND FREQUENCY NOT REPORTED
     Route: 048
     Dates: start: 20010315, end: 20020731
  6. ASPIRIN [Concomitant]
     Route: 048
     Dates: start: 19890615
  7. WELLBUTRIN SR [Concomitant]
     Indication: EX-SMOKER
     Route: 048
     Dates: start: 20010409, end: 20020425
  8. NEXIUM [Concomitant]
     Indication: GASTROOESOPHAGEAL REFLUX DISEASE
     Route: 048
     Dates: start: 20010821
  9. BUSPAR [Concomitant]
     Dosage: THERAPY DURATION 1-2 YEARS.

REACTIONS (1)
  - LOW DENSITY LIPOPROTEIN INCREASED [None]
